FAERS Safety Report 21494598 (Version 1)
Quarter: 2022Q4

REPORT INFORMATION
  Report Type: Spontaneous
  Country: US (occurrence: US)
  Receive Date: 20221021
  Receipt Date: 20221021
  Transmission Date: 20230113
  Serious: Yes (Other)
  Sender: FDA-Public Use
  Company Number: US-BRACCO-2022US03067

PATIENT
  Age: 67 Year
  Sex: Female

DRUGS (1)
  1. PROHANCE [Suspect]
     Active Substance: GADOTERIDOL
     Indication: Magnetic resonance imaging abdominal
     Dosage: 10 ML, SINGLE
     Route: 042
     Dates: start: 20220719, end: 20220719

REACTIONS (6)
  - Laryngeal oedema [Recovering/Resolving]
  - Hypoxia [Recovered/Resolved]
  - Throat tightness [Recovering/Resolving]
  - Laryngeal erythema [Recovering/Resolving]
  - Tachycardia [Recovering/Resolving]
  - Urticaria [Recovering/Resolving]

NARRATIVE: CASE EVENT DATE: 20220719
